FAERS Safety Report 5097286-X (Version None)
Quarter: 2006Q3

REPORT INFORMATION
  Report Type: 
  Country: None (occurrence: None)
  Receive Date: 20060901
  Receipt Date: 20060821
  Transmission Date: 20061208
  Serious: Yes (Hospitalization)
  Sender: FDA-Public Use
  Company Number: TCI2006A03492

PATIENT
  Age: 71 Year
  Sex: Female

DRUGS (13)
  1. ACTOS [Suspect]
     Indication: CHEST X-RAY ABNORMAL
     Dosage: 30 MG (30 MG, 1 IN 1 D) PER ORAL
     Route: 048
     Dates: start: 20060606, end: 20060617
  2. ACTOS [Suspect]
     Indication: CREPITATIONS
     Dosage: 30 MG (30 MG, 1 IN 1 D) PER ORAL
     Route: 048
     Dates: start: 20060606, end: 20060617
  3. ACTOS [Suspect]
     Indication: DIABETES MELLITUS NON-INSULIN-DEPENDENT
     Dosage: 30 MG (30 MG, 1 IN 1 D) PER ORAL
     Route: 048
     Dates: start: 20060606, end: 20060617
  4. ACTOS [Suspect]
     Indication: DYSPNOEA
     Dosage: 30 MG (30 MG, 1 IN 1 D) PER ORAL
     Route: 048
     Dates: start: 20060606, end: 20060617
  5. ACTOS [Suspect]
     Indication: FACE OEDEMA
     Dosage: 30 MG (30 MG, 1 IN 1 D) PER ORAL
     Route: 048
     Dates: start: 20060606, end: 20060617
  6. ACTOS [Suspect]
     Indication: OEDEMA PERIPHERAL
     Dosage: 30 MG (30 MG, 1 IN 1 D) PER ORAL
     Route: 048
     Dates: start: 20060606, end: 20060617
  7. ACTOS [Suspect]
     Indication: PULMONARY OEDEMA
     Dosage: 30 MG (30 MG, 1 IN 1 D) PER ORAL
     Route: 048
     Dates: start: 20060606, end: 20060617
  8. ACTOS [Suspect]
     Indication: WEIGHT INCREASED
     Dosage: 30 MG (30 MG, 1 IN 1 D) PER ORAL
     Route: 048
     Dates: start: 20060606, end: 20060617
  9. BASEN (VOGLIBOSE) [Concomitant]
  10. THEO-SLOW (THEOPHYLLINE) [Concomitant]
  11. PROCATEROL HCL [Concomitant]
  12. PREDNISOLONE [Concomitant]
  13. AMARYL [Concomitant]

REACTIONS (25)
  - ALANINE AMINOTRANSFERASE INCREASED [None]
  - ASPARTATE AMINOTRANSFERASE INCREASED [None]
  - ASTHMA [None]
  - BLOOD ALKALINE PHOSPHATASE INCREASED [None]
  - BLOOD CREATININE DECREASED [None]
  - BLOOD GLUCOSE INCREASED [None]
  - BLOOD LACTATE DEHYDROGENASE INCREASED [None]
  - BLOOD UREA DECREASED [None]
  - CHEST X-RAY ABNORMAL [None]
  - COMPUTERISED TOMOGRAM ABNORMAL [None]
  - CREPITATIONS [None]
  - DIFFUSE PANBRONCHIOLITIS [None]
  - DYSPNOEA [None]
  - FACE OEDEMA [None]
  - GLYCOSYLATED HAEMOGLOBIN INCREASED [None]
  - HEART RATE INCREASED [None]
  - HEPATIC CONGESTION [None]
  - HEPATIC FUNCTION ABNORMAL [None]
  - HYPOXIA [None]
  - LUNG DISORDER [None]
  - OEDEMA PERIPHERAL [None]
  - OXYGEN SATURATION DECREASED [None]
  - PULMONARY OEDEMA [None]
  - RESPIRATORY ACIDOSIS [None]
  - WEIGHT INCREASED [None]
